FAERS Safety Report 9281171 (Version 3)
Quarter: 2014Q1

REPORT INFORMATION
  Report Type: Report from Study
  Country: US (occurrence: US)
  Receive Date: 20130509
  Receipt Date: 20140227
  Transmission Date: 20141002
  Serious: Yes (Hospitalization)
  Sender: FDA-Public Use
  Company Number: US-JNJFOC-20130500088

PATIENT
  Age: 12 Year
  Sex: Female
  Weight: 26.3 kg

DRUGS (5)
  1. REMICADE [Suspect]
     Indication: CROHN^S DISEASE
     Route: 042
     Dates: start: 20120727
  2. 5-ASA [Concomitant]
     Route: 048
  3. TACROLIMUS [Concomitant]
     Route: 065
  4. MIRALAX [Concomitant]
     Route: 065
  5. CYPROHEPTADINE [Concomitant]
     Route: 065

REACTIONS (1)
  - Weight decreased [Recovered/Resolved]
